FAERS Safety Report 14484008 (Version 1)
Quarter: 2018Q1

REPORT INFORMATION
  Report Type: Spontaneous
  Country: US (occurrence: US)
  Receive Date: 20180205
  Receipt Date: 20180205
  Transmission Date: 20180509
  Serious: Yes (Other)
  Sender: FDA-Public Use
  Company Number: US-AEGERION PHARMACEUTICAL, INC-AEGR003569

PATIENT
  Age: 60 Year
  Sex: Female
  Weight: 61.68 kg

DRUGS (5)
  1. JUXTAPID [Suspect]
     Active Substance: LOMITAPIDE MESYLATE
     Dosage: 5 MG, AT BEDTIME
     Route: 048
     Dates: start: 2017
  2. RANEXA [Suspect]
     Active Substance: RANOLAZINE
     Indication: VENTRICULAR EXTRASYSTOLES
  3. JUXTAPID [Suspect]
     Active Substance: LOMITAPIDE MESYLATE
     Indication: TYPE IIA HYPERLIPIDAEMIA
     Dosage: UNK
  4. ASPIRIN                            /00002701/ [Concomitant]
     Active Substance: ASPIRIN
     Indication: PRODUCT USED FOR UNKNOWN INDICATION
  5. VITAMIN D3 [Concomitant]
     Active Substance: CHOLECALCIFEROL
     Indication: PRODUCT USED FOR UNKNOWN INDICATION

REACTIONS (4)
  - Myocardial infarction [Unknown]
  - Dizziness [Unknown]
  - Ventricular extrasystoles [Unknown]
  - Diarrhoea [Unknown]

NARRATIVE: CASE EVENT DATE: 20171211
